FAERS Safety Report 6424024-8 (Version None)
Quarter: 2009Q4

REPORT INFORMATION
  Report Type: 
  Country: None (occurrence: None)
  Receive Date: 20091030
  Receipt Date: 20091030
  Transmission Date: 20100525
  Serious: Yes (Hospitalization)
  Sender: FDA-Public Use
  Company Number: None

PATIENT
  Age: 43 Year
  Sex: Male
  Weight: 105.2345 kg

DRUGS (4)
  1. TYGACIL [Suspect]
     Indication: PELVIC ABSCESS
     Dosage: TYGACIL 50 MG Q12H IV DRIP
     Route: 041
     Dates: start: 20090930, end: 20091025
  2. TYGACIL [Suspect]
  3. TYGACIL [Suspect]
  4. TYGACIL [Suspect]

REACTIONS (1)
  - PANCREATITIS [None]
